FAERS Safety Report 7639358-9 (Version None)
Quarter: 2011Q3

REPORT INFORMATION
  Report Type: 
  Country: None (occurrence: None)
  Receive Date: 20110727
  Receipt Date: 20110720
  Transmission Date: 20111222
  Serious: Yes (Hospitalization, Other)
  Sender: FDA-Public Use
  Company Number: US-GENZYME-CLOF-1001475

PATIENT
  Sex: Male
  Weight: 23.9 kg

DRUGS (8)
  1. CLOLAR [Suspect]
     Indication: ACUTE LYMPHOCYTIC LEUKAEMIA
     Dosage: 52 MG/M2, QD
     Route: 065
     Dates: start: 20110103, end: 20110108
  2. CLOLAR [Suspect]
     Dosage: 20 MG/M2, UNK
     Route: 065
     Dates: start: 20110202, end: 20110206
  3. CYTARABINE [Suspect]
     Indication: ACUTE LYMPHOCYTIC LEUKAEMIA
     Dosage: 1 G/M2, UNK
     Route: 065
     Dates: start: 20110103, end: 20110108
  4. THIOTEPA [Suspect]
     Indication: ACUTE LYMPHOCYTIC LEUKAEMIA
     Dosage: 10 MG/KG, UNK
     Route: 065
     Dates: start: 20110207, end: 20110207
  5. CYTARABINE [Suspect]
     Dosage: UNK
     Route: 037
     Dates: start: 20110125, end: 20110125
  6. LEVALBUTEROL HYDROCHLORIDE [Concomitant]
     Indication: OXYGEN SATURATION
     Dosage: UNK
     Route: 065
     Dates: start: 20110201
  7. FUROSEMIDE [Concomitant]
     Indication: FLUID RETENTION
     Dosage: IV
     Route: 042
     Dates: start: 20110211, end: 20110407
  8. MELPHALAN HYDROCHLORIDE [Suspect]
     Indication: ACUTE LYMPHOCYTIC LEUKAEMIA
     Dosage: 70 MG/M2, UNK
     Route: 065
     Dates: start: 20110208, end: 20110208

REACTIONS (7)
  - METAPNEUMOVIRUS INFECTION [None]
  - HYPOXIA [None]
  - ADENOVIRUS INFECTION [None]
  - HYPOTENSION [None]
  - CYTOMEGALOVIRUS INFECTION [None]
  - PNEUMONITIS [None]
  - BK VIRUS INFECTION [None]
